FAERS Safety Report 9293006 (Version 1)
Quarter: 2013Q2

REPORT INFORMATION
  Report Type: Spontaneous
  Country: US (occurrence: US)
  Receive Date: 20130516
  Receipt Date: 20130516
  Transmission Date: 20140414
  Serious: Yes (Other)
  Sender: FDA-Public Use
  Company Number: US-ELI_LILLY_AND_COMPANY-US201305000864

PATIENT
  Sex: 0

DRUGS (6)
  1. PEMETREXED [Suspect]
     Indication: NON-SMALL CELL LUNG CANCER
     Dosage: 500 MG/M2, UNK
  2. CISPLATIN [Concomitant]
     Indication: NON-SMALL CELL LUNG CANCER
     Dosage: 75 MG/M2, UNK
  3. VORINOSTAT [Concomitant]
     Indication: NON-SMALL CELL LUNG CANCER
     Dosage: 100 MG, 3/W
     Route: 048
  4. VORINOSTAT [Concomitant]
     Dosage: 200 MG, 3/W
     Route: 048
  5. FOLIC ACID [Concomitant]
  6. VITAMIN B12 [Concomitant]

REACTIONS (1)
  - Hyponatraemia [Unknown]
